FAERS Safety Report 23867518 (Version 1)
Quarter: 2024Q2

REPORT INFORMATION
  Report Type: Spontaneous
  Country: CA (occurrence: US)
  Receive Date: 20240517
  Receipt Date: 20240517
  Transmission Date: 20240716
  Serious: No
  Sender: FDA-Public Use
  Company Number: CA-TEVA-VS-3194555

PATIENT

DRUGS (1)
  1. ADDERALL [Suspect]
     Active Substance: AMPHETAMINE ASPARTATE\AMPHETAMINE SULFATE\DEXTROAMPHETAMINE SACCHARATE\DEXTROAMPHETAMINE SULFATE
     Indication: Product used for unknown indication
     Route: 065

REACTIONS (4)
  - Paraesthesia [Unknown]
  - Drug ineffective [Unknown]
  - Somnolence [Unknown]
  - Loss of personal independence in daily activities [Unknown]
